FAERS Safety Report 4290081-0 (Version None)
Quarter: 2004Q1

REPORT INFORMATION
  Report Type: 
  Country: None (occurrence: None)
  Receive Date: 20040210
  Receipt Date: 20040129
  Transmission Date: 20041129
  Serious: Yes (Death)
  Sender: FDA-Public Use
  Company Number: NO-BRISTOL-MYERS SQUIBB COMPANY-12495040

PATIENT
  Age: 73 Year
  Sex: Female

DRUGS (2)
  1. VEPESID [Suspect]
     Indication: SMALL CELL LUNG CANCER STAGE UNSPECIFIED
     Route: 042
     Dates: start: 20030714, end: 20030718
  2. CARBOPLATIN [Suspect]
     Indication: SMALL CELL LUNG CANCER STAGE UNSPECIFIED
     Route: 042
     Dates: start: 20030714, end: 20030714

REACTIONS (3)
  - CLOSTRIDIUM COLITIS [None]
  - NEUTROPENIC SEPSIS [None]
  - SMALL CELL LUNG CANCER STAGE UNSPECIFIED [None]
